FAERS Safety Report 12539420 (Version 1)
Quarter: 2016Q3

REPORT INFORMATION
  Report Type: Spontaneous
  Country: ES (occurrence: ES)
  Receive Date: 20160708
  Receipt Date: 20160708
  Transmission Date: 20161109
  Serious: Yes (Other)
  Sender: FDA-Public Use
  Company Number: ES-ROCHE-1790853

PATIENT

DRUGS (1)
  1. HERCEPTIN [Suspect]
     Active Substance: TRASTUZUMAB
     Indication: GASTRIC CANCER
     Dosage: TRASTUZUMAB TREATMENT ONGOING, IN MAINTENANCE FROM ALMOST 1 YEAR
     Route: 065

REACTIONS (1)
  - Hepatocellular carcinoma [Unknown]
